FAERS Safety Report 6653103-5 (Version None)
Quarter: 2010Q1

REPORT INFORMATION
  Report Type: 
  Country: None (occurrence: None)
  Receive Date: 20100311
  Receipt Date: 20091106
  Transmission Date: 20100710
  Serious: Yes (Other)
  Sender: FDA-Public Use
  Company Number: 2009294399

PATIENT
  Sex: Female

DRUGS (2)
  1. PROCARDIA [Suspect]
  2. ENALAPRIL MALEATE [Suspect]

REACTIONS (4)
  - HYPERTENSION [None]
  - INSOMNIA [None]
  - OEDEMA [None]
  - PALPITATIONS [None]
